FAERS Safety Report 24576248 (Version 1)
Quarter: 2024Q4

REPORT INFORMATION
  Report Type: Spontaneous
  Country: US (occurrence: US)
  Receive Date: 20241104
  Receipt Date: 20241104
  Transmission Date: 20250115
  Serious: Yes (Congenital Anomaly, Other)
  Sender: DR REDDYS
  Company Number: US-DRL-USA-SPO/USA/24/0016267

PATIENT
  Sex: Male

DRUGS (1)
  1. ESGIC [Suspect]
     Active Substance: ACETAMINOPHEN\BUTALBITAL\CAFFEINE
     Indication: Product used for unknown indication
     Route: 064

REACTIONS (8)
  - Neonatal respiratory distress syndrome [Unknown]
  - Premature baby [Unknown]
  - Facial asymmetry [Unknown]
  - Phimosis [Unknown]
  - Jaundice neonatal [Unknown]
  - Gastrooesophageal reflux in neonate [Unknown]
  - Cryptorchism [Unknown]
  - Foetal exposure during pregnancy [Unknown]
